FAERS Safety Report 9302292 (Version 4)
Quarter: 2014Q3

REPORT INFORMATION
  Report Type: Report from Study
  Country: US (occurrence: US)
  Receive Date: 20130522
  Receipt Date: 20140801
  Transmission Date: 20150326
  Serious: Yes (Other)
  Sender: FDA-Public Use
  Company Number: US-ROCHE-1225525

PATIENT

DRUGS (3)
  1. VEMURAFENIB [Suspect]
     Active Substance: VEMURAFENIB
     Indication: METASTATIC MALIGNANT MELANOMA
     Route: 048
  2. BKM120 [Suspect]
     Active Substance: BUPARLISIB HYDROCHLORIDE
     Indication: METASTATIC MALIGNANT MELANOMA
     Route: 048
  3. BKM120 [Suspect]
     Active Substance: BUPARLISIB HYDROCHLORIDE
     Route: 048

REACTIONS (1)
  - Febrile neutropenia [Recovered/Resolved]
